FAERS Safety Report 8958600 (Version 1)
Quarter: 2012Q4

REPORT INFORMATION
  Report Type: Spontaneous
  Country: US (occurrence: None)
  Receive Date: 20121205
  Receipt Date: 20121205
  Transmission Date: 20130627
  Serious: Yes (Other)
  Sender: FDA-Public Use
  Company Number: None

PATIENT
  Age: 45 Year
  Sex: Female
  Weight: 88.45 kg

DRUGS (2)
  1. FLUTICASONE PROPIONATE [Suspect]
     Indication: SEASONAL ALLERGY
     Dosage: 50 mcg.  once daily  unknown
     Dates: start: 20121016, end: 20121129
  2. TRAMADOL HCL [Suspect]
     Indication: OSTEOARTHRITIS
     Dosage: 50 mg.  4-6 hours   unknown
     Dates: start: 20120718, end: 20121129

REACTIONS (11)
  - Dyspnoea [None]
  - Thirst [None]
  - Headache [None]
  - Nasal dryness [None]
  - Nausea [None]
  - Constipation [None]
  - Hypopnoea [None]
  - Respiratory rate decreased [None]
  - Somnolence [None]
  - Heart rate increased [None]
  - Muscle twitching [None]
